FAERS Safety Report 4828407-9 (Version None)
Quarter: 2005Q4

REPORT INFORMATION
  Report Type: 
  Country: None (occurrence: None)
  Receive Date: 20051115
  Receipt Date: 20050915
  Transmission Date: 20060501
  Serious: Yes (Hospitalization)
  Sender: FDA-Public Use
  Company Number: US-MERCK-0509USA02502

PATIENT
  Sex: Female
  Weight: 93 kg

DRUGS (12)
  1. VIOXX [Suspect]
     Indication: NECK PAIN
     Route: 048
     Dates: start: 20010601, end: 20030801
  2. VIOXX [Suspect]
     Indication: ARTHRALGIA
     Route: 048
     Dates: start: 20010601, end: 20030801
  3. IBUPROFEN [Concomitant]
     Route: 065
  4. NAPROSYN [Concomitant]
     Indication: NECK PAIN
     Route: 065
     Dates: start: 20000101, end: 20020101
  5. CELEBREX [Concomitant]
     Route: 065
  6. TAGAMET [Concomitant]
     Route: 065
  7. METOPROLOL SUCCINATE [Concomitant]
     Indication: HEART RATE ABNORMAL
     Route: 065
     Dates: start: 20020101
  8. PREMPRO [Concomitant]
     Indication: HORMONE REPLACEMENT THERAPY
     Route: 065
     Dates: start: 19920101, end: 20020101
  9. NIFEDIPINE [Concomitant]
     Indication: HYPERTENSION
     Route: 065
     Dates: start: 20010101
  10. MEVACOR [Concomitant]
     Route: 065
     Dates: start: 20020101, end: 20030101
  11. PROZAC [Concomitant]
     Indication: DEPRESSION
     Route: 065
     Dates: start: 20000101
  12. TYLENOL (CAPLET) [Concomitant]
     Route: 065
     Dates: start: 19920101

REACTIONS (8)
  - DEPRESSION [None]
  - DYSPNOEA [None]
  - GASTROINTESTINAL DISORDER [None]
  - HYPERHIDROSIS [None]
  - MYOCARDIAL INFARCTION [None]
  - NAUSEA [None]
  - THYROID DISORDER [None]
  - UTERINE HAEMORRHAGE [None]
